FAERS Safety Report 5485150-3 (Version None)
Quarter: 2007Q4

REPORT INFORMATION
  Report Type: 
  Country: None (occurrence: None)
  Receive Date: 20071015
  Receipt Date: 20071003
  Transmission Date: 20080405
  Serious: Yes (Hospitalization, Other)
  Sender: FDA-Public Use
  Company Number: US-ABBOTT-07P-163-0419627-00

PATIENT
  Sex: Female

DRUGS (2)
  1. HUMIRA [Suspect]
     Indication: CROHN'S DISEASE
     Dosage: LOADING DOSE
     Route: 058
     Dates: start: 20070918, end: 20071002
  2. HUMIRA [Suspect]
     Dates: start: 20071002

REACTIONS (4)
  - ABDOMINAL PAIN [None]
  - CLOSTRIDIAL INFECTION [None]
  - PYREXIA [None]
  - RECTAL HAEMORRHAGE [None]
